FAERS Safety Report 7796931-5 (Version None)
Quarter: 2011Q4

REPORT INFORMATION
  Report Type: 
  Country: None (occurrence: None)
  Receive Date: 20111005
  Receipt Date: 20110929
  Transmission Date: 20120403
  Serious: Yes (Hospitalization)
  Sender: FDA-Public Use
  Company Number: IE-AMGEN-IRLSP2011040449

PATIENT
  Sex: Female

DRUGS (9)
  1. PANTOPRAZOLE [Concomitant]
  2. ANXICALM                           /00017001/ [Concomitant]
  3. CALCIUM CARBONATE [Concomitant]
  4. NEOCLARITYN [Concomitant]
  5. AVAMYS [Concomitant]
  6. ANAFRANIL [Concomitant]
  7. NEULASTA [Suspect]
     Indication: CHEMOTHERAPY
     Dosage: 6 MG, Q3WK
     Route: 058
     Dates: start: 20110603
  8. ANTINEOPLASTIC AGENTS [Concomitant]
  9. LAMICTAL [Concomitant]

REACTIONS (4)
  - BONE PAIN [None]
  - MALAISE [None]
  - OROPHARYNGEAL BLISTERING [None]
  - INFECTION [None]
